FAERS Safety Report 9704644 (Version 2)
Quarter: 2014Q1

REPORT INFORMATION
  Report Type: Report from Study
  Country: US (occurrence: US)
  Receive Date: 20131122
  Receipt Date: 20140328
  Transmission Date: 20141002
  Serious: Yes (Hospitalization)
  Sender: FDA-Public Use
  Company Number: US-ABBVIE-13P-163-1170065-00

PATIENT
  Age: 60 Year
  Sex: Female
  Weight: 70.37 kg

DRUGS (10)
  1. HUMIRA [Suspect]
     Indication: PSORIASIS
     Dosage: ONCE
     Dates: start: 20131003
  2. HUMIRA [Suspect]
     Indication: RHEUMATOID ARTHRITIS
  3. BENICAR [Concomitant]
     Indication: HYPERTENSION
  4. BENICAR [Concomitant]
     Dosage: DOUBLED
     Dates: start: 201402
  5. ALEVE [Concomitant]
     Indication: PAIN
  6. TRAMADOL [Concomitant]
     Indication: PAIN
     Dosage: 2 AT NIGHT
  7. BENICAR HCT [Concomitant]
     Indication: HYPERTENSION
     Dosage: 40/25 MG DAILY
     Dates: start: 20140227
  8. VITAMIN D [Concomitant]
     Indication: VITAMIN SUPPLEMENTATION
  9. FISH OIL [Concomitant]
     Indication: NUTRITIONAL SUPPLEMENTATION
  10. VITAMIN B12 (CYANOCOBALAMIN AND ANALOGUES) [Concomitant]
     Indication: VITAMIN SUPPLEMENTATION

REACTIONS (13)
  - Pericarditis [Recovered/Resolved]
  - Pleurisy [Recovered/Resolved]
  - Pneumonia [Recovered/Resolved]
  - Chest pain [Recovered/Resolved]
  - Musculoskeletal pain [Recovered/Resolved]
  - Electrocardiogram abnormal [Recovered/Resolved]
  - Cardiac failure [Recovered/Resolved]
  - Palpitations [Recovered/Resolved]
  - Injection site pain [Recovered/Resolved]
  - Psoriasis [Not Recovered/Not Resolved]
  - Pruritus [Not Recovered/Not Resolved]
  - Psoriasis [Not Recovered/Not Resolved]
  - Hypertension [Recovered/Resolved]
